FAERS Safety Report 24356410 (Version 2)
Quarter: 2024Q3

REPORT INFORMATION
  Report Type: Spontaneous
  Country: CN (occurrence: CN)
  Receive Date: 20240924
  Receipt Date: 20240925
  Transmission Date: 20241016
  Serious: Yes (Hospitalization)
  Sender: JOHNSON AND JOHNSON
  Company Number: CN-JNJFOC-20240960412

PATIENT
  Age: 1 Year
  Sex: Male
  Weight: 10 kg

DRUGS (3)
  1. CHILDRENS MOTRIN [Suspect]
     Active Substance: IBUPROFEN
     Indication: Antipyresis
     Route: 048
     Dates: start: 20240905, end: 20240905
  2. CHILDRENS MOTRIN [Suspect]
     Active Substance: IBUPROFEN
     Route: 048
     Dates: start: 20240906, end: 20240906
  3. CHILDRENS MOTRIN [Suspect]
     Active Substance: IBUPROFEN
     Route: 048
     Dates: start: 20240907, end: 20240907

REACTIONS (2)
  - Neutrophil count decreased [Unknown]
  - Off label use [Unknown]

NARRATIVE: CASE EVENT DATE: 20240905
